FAERS Safety Report 7128565 (Version 2)
Quarter: 2017Q3

REPORT INFORMATION
  Report Type: Report from Study
  Country: US (occurrence: US)
  Receive Date: 20090924
  Receipt Date: 20170807
  Transmission Date: 20171128
  Serious: No
  Sender: FDA-Public Use
  Company Number: US-ASTRAZENECA-2009UW14988

PATIENT
  Sex: Female

DRUGS (3)
  1. SEROQUEL [Interacting]
     Active Substance: QUETIAPINE FUMARATE
     Route: 048
  2. OXYCONTIN [Interacting]
     Active Substance: OXYCODONE HYDROCHLORIDE
     Route: 048
  3. SEROQUEL [Suspect]
     Active Substance: QUETIAPINE FUMARATE
     Route: 048

REACTIONS (3)
  - Spinal disorder [Unknown]
  - Thinking abnormal [Unknown]
  - Drug interaction [Unknown]
